FAERS Safety Report 18446652 (Version 1)
Quarter: 2020Q4

REPORT INFORMATION
  Report Type: Spontaneous
  Country: US (occurrence: US)
  Receive Date: 20201030
  Receipt Date: 20201030
  Transmission Date: 20210114
  Serious: Yes (Hospitalization)
  Sender: FDA-Public Use
  Company Number: None

PATIENT
  Sex: Female

DRUGS (15)
  1. OMEPRAZOLE. [Concomitant]
     Active Substance: OMEPRAZOLE
  2. PREDNISONE. [Concomitant]
     Active Substance: PREDNISONE
  3. ROSUVASTATIN. [Concomitant]
     Active Substance: ROSUVASTATIN
  4. SPIONOLACT [Concomitant]
  5. TRAMADOL. [Concomitant]
     Active Substance: TRAMADOL
  6. NORVASC [Concomitant]
     Active Substance: AMLODIPINE BESYLATE
  7. ENBREL [Suspect]
     Active Substance: ETANERCEPT
     Indication: PSORIATIC ARTHROPATHY
     Dosage: ?          OTHER FREQUENCY:WEEKLY;?
     Route: 058
     Dates: start: 20170929
  8. CRESTOR [Concomitant]
     Active Substance: ROSUVASTATIN CALCIUM
  9. IBUPROFEN. [Concomitant]
     Active Substance: IBUPROFEN
  10. LEVOTHYROXIN [Concomitant]
     Active Substance: LEVOTHYROXINE
  11. LISINOPRIL. [Concomitant]
     Active Substance: LISINOPRIL
  12. HYDROXYCHLOR [Concomitant]
     Active Substance: HYDROXYCHLOROQUINE
  13. NEXIUM [Concomitant]
     Active Substance: ESOMEPRAZOLE MAGNESIUM
  14. AMLODIPINE [Concomitant]
     Active Substance: AMLODIPINE BESYLATE
  15. ANASTROZOLE. [Concomitant]
     Active Substance: ANASTROZOLE

REACTIONS (3)
  - Therapeutic product effect decreased [None]
  - Spinal fusion surgery [None]
  - Therapy interrupted [None]
